FAERS Safety Report 24301742 (Version 1)
Quarter: 2024Q3

REPORT INFORMATION
  Report Type: Report from Study
  Country: IN (occurrence: IN)
  Receive Date: 20240910
  Receipt Date: 20240910
  Transmission Date: 20241017
  Serious: Yes (Hospitalization)
  Sender: ROCHE
  Company Number: IN-ROCHE-3571960

PATIENT
  Age: 73 Year
  Sex: Male
  Weight: 50.0 kg

DRUGS (2)
  1. POLIVY [Suspect]
     Active Substance: POLATUZUMAB VEDOTIN-PIIQ
     Indication: B-cell lymphoma
     Route: 042
     Dates: start: 20240513
  2. POLIVY [Suspect]
     Active Substance: POLATUZUMAB VEDOTIN-PIIQ
     Route: 042

REACTIONS (5)
  - Pyrexia [Recovered/Resolved]
  - White blood cell count decreased [Unknown]
  - Infection [Unknown]
  - Electrolyte imbalance [Unknown]
  - Immunodeficiency [Unknown]
